FAERS Safety Report 6174091-4 (Version None)
Quarter: 2009Q2

REPORT INFORMATION
  Report Type: 
  Country: None (occurrence: None)
  Receive Date: 20090430
  Receipt Date: 20090108
  Transmission Date: 20091009
  Serious: Yes (Hospitalization)
  Sender: FDA-Public Use
  Company Number: PHHY2009CA14822

PATIENT

DRUGS (14)
  1. BASILIXIMAB [Suspect]
     Indication: RENAL TRANSPLANT
  2. MYCOPHENOLATE MOFETIL [Suspect]
     Indication: RENAL TRANSPLANT
     Dosage: 1.5 G, BID
     Dates: start: 20051215
  3. MYCOPHENOLATE MOFETIL [Suspect]
     Dosage: 1 G, BID
  4. MYCOPHENOLATE MOFETIL [Suspect]
     Dosage: 750 MG, BID
     Dates: start: 20060107
  5. MYCOPHENOLATE MOFETIL [Suspect]
     Dosage: 1000 MG, BID
  6. MYCOPHENOLATE MOFETIL [Suspect]
     Dosage: 750 MG, BID
  7. MYCOPHENOLATE MOFETIL [Suspect]
     Dosage: 500 MG, BID
  8. MYCOPHENOLATE MOFETIL [Suspect]
     Dosage: 250 MG, BID
  9. METHYLPREDNISOLONE 4MG TAB [Suspect]
  10. TACROLIMUS [Suspect]
     Indication: RENAL TRANSPLANT
     Dosage: 11 MG / DAILY
     Dates: start: 20051214
  11. ADALAT CC [Concomitant]
  12. CALCIUM CARBONATE [Concomitant]
  13. CENTRUM FORTE [Concomitant]
  14. ZINC [Concomitant]

REACTIONS (4)
  - ANAEMIA [None]
  - DIARRHOEA [None]
  - NEUTROPENIA [None]
  - PYREXIA [None]
